FAERS Safety Report 8560072-X (Version None)
Quarter: 2012Q3

REPORT INFORMATION
  Report Type: 
  Country: None (occurrence: None)
  Receive Date: 20120802
  Receipt Date: 20120725
  Transmission Date: 20120928
  Serious: Yes (Other)
  Sender: FDA-Public Use
  Company Number: JP-VERTEX PHARMACEUTICALS INC.-AE-2012-010236

PATIENT
  Age: 56 Year
  Sex: Male

DRUGS (10)
  1. URSO 250 [Concomitant]
     Route: 048
  2. PREDNISOLONE [Concomitant]
     Indication: DRUG ERUPTION
     Route: 048
     Dates: start: 20120618, end: 20120701
  3. TELAVIC (TELAPREVIR) [Suspect]
     Route: 048
     Dates: start: 20120618, end: 20120624
  4. REBETOL [Concomitant]
     Indication: HEPATITIS C
     Route: 048
     Dates: start: 20120423, end: 20120527
  5. ANTEBATE: OINTMENT [Concomitant]
     Route: 061
     Dates: start: 20120426
  6. TELAVIC (TELAPREVIR) [Suspect]
     Indication: HEPATITIS C
     Route: 048
     Dates: start: 20120423, end: 20120617
  7. FLAVITAN [Concomitant]
     Route: 048
     Dates: start: 20120521, end: 20120527
  8. REBETOL [Concomitant]
     Route: 048
     Dates: start: 20120528, end: 20120704
  9. PEGINTERFERON ALFA-2B [Concomitant]
     Indication: HEPATITIS C
     Route: 058
     Dates: start: 20120423, end: 20120429
  10. PEGINTERFERON ALFA-2B [Concomitant]
     Route: 058
     Dates: start: 20120430

REACTIONS (11)
  - FOLLICULITIS [None]
  - HEADACHE [None]
  - CHEILITIS [None]
  - HAEMOGLOBIN DECREASED [None]
  - DRUG ERUPTION [None]
  - TRANSAMINASES INCREASED [None]
  - BLOOD CREATININE INCREASED [None]
  - DECREASED APPETITE [None]
  - BLOOD URIC ACID INCREASED [None]
  - INSOMNIA [None]
  - PLATELET COUNT DECREASED [None]
